FAERS Safety Report 9963966 (Version 1)
Quarter: 2014Q1

REPORT INFORMATION
  Report Type: Spontaneous
  Country: AU (occurrence: AU)
  Receive Date: 20140305
  Receipt Date: 20140305
  Transmission Date: 20141002
  Serious: Yes (Other)
  Sender: FDA-Public Use
  Company Number: PHHY2014AU024780

PATIENT
  Age: 74 Year
  Sex: Male

DRUGS (3)
  1. FOLINIC ACID [Suspect]
     Indication: COLON CANCER
  2. 5-FLUOROURACIL [Suspect]
     Indication: COLON CANCER
  3. OXALIPLATIN [Suspect]
     Indication: COLON CANCER

REACTIONS (6)
  - Peripheral sensory neuropathy [Unknown]
  - Metastases to liver [Unknown]
  - Metastases to lung [Unknown]
  - Neutropenia [Recovered/Resolved]
  - Diarrhoea [Recovered/Resolved]
  - Stomatitis [Recovered/Resolved]
